FAERS Safety Report 22289982 (Version 1)
Quarter: 2023Q2

REPORT INFORMATION
  Report Type: Spontaneous
  Country: CN (occurrence: CN)
  Receive Date: 20230505
  Receipt Date: 20230505
  Transmission Date: 20230722
  Serious: Yes (Death, Other)
  Sender: FDA-Public Use
  Company Number: CN-AMGEN-CHNSP2023076025

PATIENT

DRUGS (1)
  1. FILGRASTIM [Suspect]
     Active Substance: FILGRASTIM
     Indication: Product used for unknown indication
     Dosage: UNK
     Route: 065

REACTIONS (15)
  - Death [Fatal]
  - White blood cell count increased [Fatal]
  - Lymphocyte count increased [Fatal]
  - Platelet count increased [Fatal]
  - Neutrophil count increased [Fatal]
  - Red cell distribution width increased [Fatal]
  - Seizure [Unknown]
  - Coma [Unknown]
  - Delirium [Unknown]
  - Lethargy [Unknown]
  - Tremor [Unknown]
  - Confusional state [Unknown]
  - Somnolence [Unknown]
  - Agitation [Unknown]
  - Drug ineffective [Unknown]
